FAERS Safety Report 12546884 (Version 2)
Quarter: 2016Q3

REPORT INFORMATION
  Report Type: Spontaneous
  Country: US (occurrence: US)
  Receive Date: 20160711
  Receipt Date: 20160719
  Transmission Date: 20161109
  Serious: Yes (Hospitalization)
  Sender: FDA-Public Use
  Company Number: US-BIOGEN-2016BI00261347

PATIENT
  Sex: Female

DRUGS (2)
  1. AVONEX [Interacting]
     Active Substance: INTERFERON BETA-1A
     Route: 065
     Dates: start: 20010509
  2. AVONEX [Suspect]
     Active Substance: INTERFERON BETA-1A
     Indication: MULTIPLE SCLEROSIS
     Route: 030
     Dates: start: 20150601

REACTIONS (5)
  - Hypotension [Recovered/Resolved]
  - Drug interaction [Unknown]
  - Multiple sclerosis relapse [Unknown]
  - Dizziness [Recovered/Resolved]
  - Dyspnoea [Recovered/Resolved]
